FAERS Safety Report 9228761 (Version 1)
Quarter: 2013Q2

REPORT INFORMATION
  Report Type: Spontaneous
  Country: NO (occurrence: NO)
  Receive Date: 20130412
  Receipt Date: 20130412
  Transmission Date: 20140414
  Serious: Yes (Death, Hospitalization)
  Sender: FDA-Public Use
  Company Number: NO-009507513-1303NOR001275

PATIENT
  Age: 82 Year
  Sex: Female

DRUGS (5)
  1. ZOCOR [Suspect]
     Dosage: 10 MG DAILY
     Route: 065
  2. WARFARIN SODIUM [Interacting]
     Indication: DEEP VEIN THROMBOSIS
     Dosage: 2.5 MG DAILY
     Route: 065
  3. WARFARIN SODIUM [Interacting]
     Indication: PULMONARY EMBOLISM
  4. ASPIRIN [Concomitant]
     Indication: CEREBRAL INFARCTION
     Dosage: 75 MG/DAY
     Route: 065
     Dates: start: 1998
  5. ASPIRIN [Concomitant]
     Indication: TRANSIENT ISCHAEMIC ATTACK

REACTIONS (3)
  - Cerebral haemorrhage [Fatal]
  - Drug interaction [Fatal]
  - International normalised ratio increased [Fatal]
